FAERS Safety Report 7521600-6 (Version None)
Quarter: 2011Q2

REPORT INFORMATION
  Report Type: 
  Country: None (occurrence: None)
  Receive Date: 20110603
  Receipt Date: 20110601
  Transmission Date: 20111010
  Serious: No
  Sender: FDA-Public Use
  Company Number: US-PFIZER INC-2011119879

PATIENT
  Sex: Female
  Weight: 70.3 kg

DRUGS (3)
  1. ZESTRIL [Concomitant]
     Indication: BLOOD PRESSURE ABNORMAL
     Dosage: 20 MG, DAILY
     Route: 048
  2. PROZAC [Concomitant]
     Indication: MIGRAINE
     Dosage: 20 MG, DAILY
     Route: 048
  3. LIPITOR [Suspect]
     Indication: BLOOD TRIGLYCERIDES ABNORMAL
     Dosage: 20 MG, DAILY
     Route: 048

REACTIONS (4)
  - MUSCULOSKELETAL STIFFNESS [None]
  - LIMB DISCOMFORT [None]
  - PAIN IN EXTREMITY [None]
  - FATIGUE [None]
